FAERS Safety Report 7776658-6 (Version None)
Quarter: 2011Q3

REPORT INFORMATION
  Report Type: 
  Country: None (occurrence: None)
  Receive Date: 20110926
  Receipt Date: 20100430
  Transmission Date: 20111222
  Serious: No
  Sender: FDA-Public Use
  Company Number: US-BAYER-201021665NA

PATIENT
  Age: 27 Year
  Sex: Female

DRUGS (1)
  1. MIRENA [Suspect]
     Indication: CONTRACEPTION
     Dosage: 20 MCG/24HR, CONT
     Route: 015
     Dates: start: 20100101, end: 20100504

REACTIONS (10)
  - MOOD SWINGS [None]
  - LIBIDO DECREASED [None]
  - INSOMNIA [None]
  - IRRITABILITY [None]
  - AMENORRHOEA [None]
  - ACNE [None]
  - ALOPECIA [None]
  - WEIGHT INCREASED [None]
  - POST PROCEDURAL HAEMORRHAGE [None]
  - FATIGUE [None]
